FAERS Safety Report 8296236-2 (Version None)
Quarter: 2012Q2

REPORT INFORMATION
  Report Type: 
  Country: None (occurrence: None)
  Receive Date: 20120418
  Receipt Date: 20120402
  Transmission Date: 20120825
  Serious: Yes (Other)
  Sender: FDA-Public Use
  Company Number: CHPA2012US008741

PATIENT
  Age: 47 Year
  Sex: Male

DRUGS (2)
  1. NICOTINE [Suspect]
     Indication: SMOKING CESSATION THERAPY
     Dosage: 21 MG, QD
     Route: 062
     Dates: start: 20120402
  2. LIPITOR [Concomitant]

REACTIONS (6)
  - BLOOD GLUCOSE INCREASED [None]
  - FEELING JITTERY [None]
  - BLOOD GLUCOSE DECREASED [None]
  - FEELING ABNORMAL [None]
  - CHEST DISCOMFORT [None]
  - TREMOR [None]
